FAERS Safety Report 12899953 (Version 1)
Quarter: 2016Q4

REPORT INFORMATION
  Report Type: Report from Study
  Country: US (occurrence: US)
  Receive Date: 20161101
  Receipt Date: 20161101
  Transmission Date: 20170207
  Serious: No
  Sender: FDA-Public Use
  Company Number: US-AMGEN-USASL2016142602

PATIENT
  Age: 52 Year
  Sex: Male

DRUGS (1)
  1. ENBREL [Suspect]
     Active Substance: ETANERCEPT
     Indication: ACNE
     Dosage: 50 MG, 2 TIMES/WK
     Route: 065

REACTIONS (3)
  - Off label use [Unknown]
  - Pain [Unknown]
  - Pruritus [Unknown]
